FAERS Safety Report 8160793-7 (Version None)
Quarter: 2012Q1

REPORT INFORMATION
  Report Type: 
  Country: None (occurrence: None)
  Receive Date: 20120223
  Receipt Date: 20120216
  Transmission Date: 20120608
  Serious: Yes (Other)
  Sender: FDA-Public Use
  Company Number: PHHY2011CA15827

PATIENT
  Sex: Female

DRUGS (4)
  1. NEXIUM [Concomitant]
     Dosage: 40 MG, BID
  2. ZOLEDRONOC ACID [Suspect]
     Indication: OSTEOPOROSIS
     Dosage: 5/100 MG/ML PER YEAR
     Route: 042
     Dates: start: 20110223
  3. ADALAT [Concomitant]
     Dosage: 20 MG, QD
  4. ENERGIX [Concomitant]
     Dosage: UNK

REACTIONS (9)
  - CYANOSIS [None]
  - MALAISE [None]
  - PAIN [None]
  - PHLEBITIS [None]
  - STRESS [None]
  - HEART RATE INCREASED [None]
  - PYREXIA [None]
  - OEDEMA PERIPHERAL [None]
  - PAIN IN EXTREMITY [None]
